FAERS Safety Report 9422010 (Version 2)
Quarter: 2013Q3

REPORT INFORMATION
  Report Type: Spontaneous
  Country: US (occurrence: US)
  Receive Date: 20130726
  Receipt Date: 20130830
  Transmission Date: 20140515
  Serious: No
  Sender: FDA-Public Use
  Company Number: US-JNJFOC-20130700730

PATIENT
  Sex: Female

DRUGS (5)
  1. INVEGA SUSTENNA [Suspect]
     Indication: PRODUCT USED FOR UNKNOWN INDICATION
     Route: 030
  2. INVEGA SUSTENNA [Suspect]
     Indication: PRODUCT USED FOR UNKNOWN INDICATION
     Route: 030
     Dates: start: 2010
  3. PRISTIQ [Concomitant]
     Route: 065
  4. ABILIFY [Concomitant]
     Route: 065
  5. GEODON [Concomitant]
     Route: 065

REACTIONS (2)
  - Drug effect decreased [Unknown]
  - Influenza like illness [Not Recovered/Not Resolved]
